FAERS Safety Report 7347981-4 (Version None)
Quarter: 2011Q1

REPORT INFORMATION
  Report Type: 
  Country: None (occurrence: None)
  Receive Date: 20110311
  Receipt Date: 20110224
  Transmission Date: 20110831
  Serious: Yes (Hospitalization, Other)
  Sender: FDA-Public Use
  Company Number: US-BAYER-201029180NA

PATIENT
  Sex: Female

DRUGS (3)
  1. ZOMIG [Concomitant]
     Dosage: 5 MG, UNK
  2. YASMIN [Suspect]
     Indication: PRODUCT USED FOR UNKNOWN INDICATION
     Route: 048
     Dates: start: 20030501, end: 20070701
  3. PHENTERMINE [Concomitant]
     Dosage: 37.5 MG, QD
     Route: 048

REACTIONS (5)
  - CEREBROVASCULAR ACCIDENT [None]
  - HEADACHE [None]
  - INTRACRANIAL VENOUS SINUS THROMBOSIS [None]
  - MENTAL STATUS CHANGES [None]
  - VOMITING [None]
